FAERS Safety Report 19258282 (Version 8)
Quarter: 2021Q4

REPORT INFORMATION
  Report Type: Report from Study
  Country: US (occurrence: US)
  Receive Date: 20210514
  Receipt Date: 20211129
  Transmission Date: 20220303
  Serious: Yes (Other)
  Sender: FDA-Public Use
  Company Number: US-GLAXOSMITHKLINE-US2021AMR094585

PATIENT
  Age: 73 Year
  Sex: Female

DRUGS (6)
  1. NIRAPARIB [Suspect]
     Active Substance: NIRAPARIB
     Indication: Ovarian cancer
     Dosage: 100 MG, QD
     Route: 048
     Dates: start: 202103
  2. NIRAPARIB [Suspect]
     Active Substance: NIRAPARIB
     Dosage: 100 MG, QD (1 CAP/DAY)
     Route: 048
     Dates: start: 20210505
  3. NIRAPARIB [Suspect]
     Active Substance: NIRAPARIB
     Dosage: 100 MG, QD
     Route: 048
     Dates: start: 2021
  4. NIRAPARIB [Suspect]
     Active Substance: NIRAPARIB
     Dosage: 100 MG, QD
     Route: 048
     Dates: start: 2021
  5. NIRAPARIB [Suspect]
     Active Substance: NIRAPARIB
     Dosage: 100 MG, QD
     Route: 048
     Dates: start: 2021
  6. GABAPENTIN [Concomitant]
     Active Substance: GABAPENTIN
     Indication: Product used for unknown indication
     Dosage: UNK

REACTIONS (26)
  - Neuropathy peripheral [Not Recovered/Not Resolved]
  - Malignant neoplasm progression [Unknown]
  - Headache [Recovered/Resolved]
  - Hot flush [Recovered/Resolved]
  - Feeling abnormal [Unknown]
  - Pain [Recovered/Resolved]
  - Back pain [Unknown]
  - Constipation [Not Recovered/Not Resolved]
  - Pruritus [Not Recovered/Not Resolved]
  - Hypertension [Not Recovered/Not Resolved]
  - Stress [Not Recovered/Not Resolved]
  - Blood magnesium decreased [Not Recovered/Not Resolved]
  - Oral pain [Not Recovered/Not Resolved]
  - Middle insomnia [Not Recovered/Not Resolved]
  - Arthralgia [Not Recovered/Not Resolved]
  - Pain in extremity [Unknown]
  - Balance disorder [Not Recovered/Not Resolved]
  - Nausea [Recovering/Resolving]
  - Dry mouth [Not Recovered/Not Resolved]
  - Dizziness [Recovered/Resolved]
  - Arthropod bite [Recovered/Resolved]
  - Poor quality sleep [Not Recovered/Not Resolved]
  - Blood pressure increased [Recovering/Resolving]
  - Anxiety [Not Recovered/Not Resolved]
  - Carbohydrate antigen 125 increased [Unknown]
  - Off label use [Unknown]

NARRATIVE: CASE EVENT DATE: 20210505
